FAERS Safety Report 8568814-4 (Version None)
Quarter: 2012Q3

REPORT INFORMATION
  Report Type: 
  Country: None (occurrence: None)
  Receive Date: 20120803
  Receipt Date: 20120628
  Transmission Date: 20120928
  Serious: No
  Sender: FDA-Public Use
  Company Number: US-ABBOTT-12P-163-0950916-00

PATIENT
  Sex: Female
  Weight: 78.542 kg

DRUGS (3)
  1. NIASPAN [Suspect]
     Indication: PROPHYLAXIS
     Dosage: AT BEDTIME
     Dates: start: 20120622
  2. ASPIRIN [Concomitant]
     Indication: PRODUCT USED FOR UNKNOWN INDICATION
     Dosage: BEFORE THE NIASPAN AT NIGHT
  3. BYSTOLIC [Concomitant]
     Indication: PRODUCT USED FOR UNKNOWN INDICATION

REACTIONS (1)
  - FLUSHING [None]
